FAERS Safety Report 19094920 (Version 1)
Quarter: 2021Q2

REPORT INFORMATION
  Report Type: Spontaneous
  Country: JP (occurrence: JP)
  Receive Date: 20210405
  Receipt Date: 20210405
  Transmission Date: 20210717
  Serious: No
  Sender: FDA-Public Use
  Company Number: JP-LUPIN PHARMACEUTICALS INC.-2021-04018

PATIENT
  Age: 9 Year
  Sex: Male

DRUGS (2)
  1. TRIAMCINOLONE [Suspect]
     Active Substance: TRIAMCINOLONE
     Indication: MORPHOEA
     Dosage: UNK
     Route: 026
  2. FLUDROXYCORTIDE [Suspect]
     Active Substance: FLURANDRENOLIDE
     Indication: MORPHOEA
     Dosage: UNK TAPE
     Route: 065

REACTIONS (1)
  - Therapy non-responder [Unknown]
